FAERS Safety Report 17911341 (Version 1)
Quarter: 2020Q2

REPORT INFORMATION
  Report Type: Spontaneous
  Country: US (occurrence: US)
  Receive Date: 20200617
  Receipt Date: 20200617
  Transmission Date: 20200714
  Serious: Yes (Disabling)
  Sender: FDA-Public Use
  Company Number: None

PATIENT
  Age: 43 Year
  Sex: Female
  Weight: 78.75 kg

DRUGS (1)
  1. MODAFINIL. [Suspect]
     Active Substance: MODAFINIL
     Indication: SLEEP DISORDER

REACTIONS (4)
  - Vertigo [None]
  - Physical product label issue [None]
  - Product expiration date issue [None]
  - Suspected product quality issue [None]

NARRATIVE: CASE EVENT DATE: 20200601
